FAERS Safety Report 9630665 (Version 1)
Quarter: 2013Q4

REPORT INFORMATION
  Report Type: Spontaneous
  Country: US (occurrence: None)
  Receive Date: 20131015
  Receipt Date: 20131015
  Transmission Date: 20140711
  Serious: Yes (Hospitalization)
  Sender: FDA-Public Use
  Company Number: QSC-2013-0363

PATIENT
  Age: 60 Year
  Sex: Female

DRUGS (1)
  1. H.P. ACTHAR [Suspect]
     Indication: FOCAL SEGMENTAL GLOMERULOSCLEROSIS
     Dosage: 40 UNITS, BIW, SUBCUTANEOUS
     Route: 058

REACTIONS (1)
  - Ischaemic stroke [None]
